FAERS Safety Report 5017915-6 (Version None)
Quarter: 2006Q2

REPORT INFORMATION
  Report Type: 
  Country: None (occurrence: None)
  Receive Date: 20060602
  Receipt Date: 20060602
  Transmission Date: 20061013
  Serious: No
  Sender: FDA-Public Use
  Company Number: None

PATIENT
  Sex: Male
  Weight: 77.1115 kg

DRUGS (1)
  1. TRASYLOL [Suspect]
     Dosage: ONE TIME
     Dates: start: 20000901, end: 20000901

REACTIONS (2)
  - CEREBROVASCULAR ACCIDENT [None]
  - PROCEDURAL COMPLICATION [None]
